FAERS Safety Report 9417556 (Version 1)
Quarter: 2013Q3

REPORT INFORMATION
  Report Type: Spontaneous
  Country: US (occurrence: US)
  Receive Date: 20130724
  Receipt Date: 20130724
  Transmission Date: 20140515
  Serious: No
  Sender: FDA-Public Use
  Company Number: US-BRISTOL-MYERS SQUIBB COMPANY-19018704

PATIENT
  Age: 50 Year
  Sex: Male

DRUGS (2)
  1. ELIQUIS [Suspect]
     Indication: DEEP VEIN THROMBOSIS
  2. ELIQUIS [Suspect]
     Indication: ATRIAL FIBRILLATION

REACTIONS (1)
  - Headache [Unknown]
